FAERS Safety Report 4764305-7 (Version None)
Quarter: 2005Q3

REPORT INFORMATION
  Report Type: 
  Country: None (occurrence: None)
  Receive Date: 20050906
  Receipt Date: 20050825
  Transmission Date: 20060218
  Serious: Yes (Hospitalization)
  Sender: FDA-Public Use
  Company Number: US_0508120907

PATIENT
  Age: 84 Year
  Sex: Female
  Weight: 51 kg

DRUGS (10)
  1. TERIPARATIDE [Suspect]
     Indication: OSTEOPOROSIS
     Dates: start: 20040601
  2. CELEBREX [Concomitant]
  3. NEURONTIN [Concomitant]
  4. NEXIUM [Concomitant]
  5. SYNTHROID [Concomitant]
  6. MULTIVITAMIN AND MINERAL SUPPLEMENT) [Concomitant]
  7. MULTI-VITAMIN [Concomitant]
  8. VITAMIN D [Concomitant]
  9. EXTRA STRENGTH TYLENOL [Concomitant]
  10. TYLENOL  PM [Concomitant]

REACTIONS (2)
  - FALL [None]
  - SPINAL FRACTURE [None]
